FAERS Safety Report 12062809 (Version 1)
Quarter: 2016Q1

REPORT INFORMATION
  Report Type: Spontaneous
  Country: CA (occurrence: CA)
  Receive Date: 20160210
  Receipt Date: 20160210
  Transmission Date: 20160526
  Serious: Yes (Other)
  Sender: FDA-Public Use
  Company Number: CA-SA-2016SA021405

PATIENT
  Age: 56 Year
  Sex: Male
  Weight: 109 kg

DRUGS (14)
  1. PRIVIGEN [Suspect]
     Active Substance: HUMAN IMMUNOGLOBULIN G
     Route: 042
  2. ACETYLSALICYLIC ACID [Concomitant]
     Active Substance: ASPIRIN
  3. PRIVIGEN [Suspect]
     Active Substance: HUMAN IMMUNOGLOBULIN G
     Route: 042
  4. FENTANYL. [Concomitant]
     Active Substance: FENTANYL
  5. PREVACID [Concomitant]
     Active Substance: LANSOPRAZOLE
  6. DIPRIVAN [Concomitant]
     Active Substance: PROPOFOL
     Dosage: 1% IV EMULSION
     Route: 042
  7. TAZOCIN [Concomitant]
     Active Substance: PIPERACILLIN SODIUM\TAZOBACTAM SODIUM
  8. PRIVIGEN [Suspect]
     Active Substance: HUMAN IMMUNOGLOBULIN G
     Route: 042
  9. PRIVIGEN [Suspect]
     Active Substance: HUMAN IMMUNOGLOBULIN G
     Dosage: SOLUTION IV
     Route: 042
  10. PRIVIGEN [Suspect]
     Active Substance: HUMAN IMMUNOGLOBULIN G
     Route: 042
  11. PRIVIGEN [Suspect]
     Active Substance: HUMAN IMMUNOGLOBULIN G
     Route: 042
  12. VANCOCIN [Suspect]
     Active Substance: VANCOMYCIN HYDROCHLORIDE
     Route: 048
  13. LASIX [Suspect]
     Active Substance: FUROSEMIDE
     Route: 042
  14. CLINDAMYCIN [Concomitant]
     Active Substance: CLINDAMYCIN\CLINDAMYCIN PHOSPHATE

REACTIONS (6)
  - Delayed haemolytic transfusion reaction [Recovered/Resolved]
  - Anti A antibody [Recovered/Resolved]
  - Antibody test abnormal [Recovered/Resolved]
  - Delayed serologic transfusion reaction [Recovered/Resolved]
  - Intravascular haemolysis [Recovered/Resolved]
  - Acute kidney injury [Recovered/Resolved]
